FAERS Safety Report 25340190 (Version 1)
Quarter: 2025Q2

REPORT INFORMATION
  Report Type: Report from Study
  Country: DZ (occurrence: DZ)
  Receive Date: 20250521
  Receipt Date: 20250521
  Transmission Date: 20250717
  Serious: Yes (Other)
  Sender: EMD SERONO INC
  Company Number: DZ-Merck Healthcare KGaA-2024059357

PATIENT
  Age: 27 Year
  Sex: Female

DRUGS (2)
  1. REBIF [Suspect]
     Active Substance: INTERFERON BETA-1A
     Indication: Multiple sclerosis
  2. REBIF [Suspect]
     Active Substance: INTERFERON BETA-1A
     Dates: start: 20210110

REACTIONS (7)
  - Anaemia of pregnancy [Unknown]
  - Pain in extremity [Unknown]
  - Pyrexia [Unknown]
  - Chills [Recovering/Resolving]
  - Myalgia [Unknown]
  - Normal newborn [Unknown]
  - Maternal exposure during pregnancy [Recovered/Resolved]

NARRATIVE: CASE EVENT DATE: 20250214
